FAERS Safety Report 4308524-2 (Version None)
Quarter: 2004Q1

REPORT INFORMATION
  Report Type: 
  Country: None (occurrence: None)
  Receive Date: 20040226
  Receipt Date: 20040206
  Transmission Date: 20041129
  Serious: Yes (Hospitalization)
  Sender: FDA-Public Use
  Company Number: 2003186531US

PATIENT
  Age: 75 Year
  Sex: Female

DRUGS (3)
  1. CELEBREX [Suspect]
     Indication: OSTEOARTHRITIS
     Dates: start: 20030101, end: 20031115
  2. ADVIL [Concomitant]
  3. EXTRA STRENGTH TYLENOL [Concomitant]

REACTIONS (1)
  - GASTROINTESTINAL ULCER HAEMORRHAGE [None]
